FAERS Safety Report 21824061 (Version 2)
Quarter: 2023Q1

REPORT INFORMATION
  Report Type: Spontaneous
  Country: US (occurrence: US)
  Receive Date: 20230105
  Receipt Date: 20230105
  Transmission Date: 20230417
  Serious: Yes (Hospitalization, Other)
  Sender: FDA-Public Use
  Company Number: US-BIOVITRUM-2023US00160

PATIENT
  Sex: Male

DRUGS (1)
  1. SYNAGIS [Suspect]
     Active Substance: PALIVIZUMAB
     Indication: Neonatal respiratory distress syndrome
     Dates: start: 20220826

REACTIONS (4)
  - Bronchiolitis [Recovering/Resolving]
  - Seizure [Recovering/Resolving]
  - Endocarditis [Recovering/Resolving]
  - Staphylococcal infection [Recovering/Resolving]
